FAERS Safety Report 7487511-X (Version None)
Quarter: 2011Q2

REPORT INFORMATION
  Report Type: 
  Country: None (occurrence: None)
  Receive Date: 20110518
  Receipt Date: 20110505
  Transmission Date: 20111010
  Serious: Yes (Hospitalization)
  Sender: FDA-Public Use
  Company Number: CH-JNJFOC-20110106575

PATIENT
  Age: 87 Year
  Sex: Female

DRUGS (18)
  1. NOVALGIN [Concomitant]
     Route: 048
     Dates: start: 20100922, end: 20101023
  2. REMERON [Concomitant]
     Indication: CIRCADIAN RHYTHM SLEEP DISORDER
     Route: 048
     Dates: start: 20101002
  3. LORAZEPAM [Concomitant]
     Route: 065
  4. RISPERDAL [Suspect]
     Indication: CIRCADIAN RHYTHM SLEEP DISORDER
     Route: 048
     Dates: start: 20100815, end: 20100906
  5. RISPERDAL [Suspect]
     Indication: AGGRESSION
     Route: 048
     Dates: start: 20100815, end: 20100906
  6. DIPIPERON [Suspect]
     Route: 048
     Dates: end: 20100910
  7. TORSEMIDE [Concomitant]
     Route: 048
     Dates: start: 20090101, end: 20100915
  8. TRIMIPRAMINE MALEATE [Concomitant]
     Indication: CIRCADIAN RHYTHM SLEEP DISORDER
     Route: 048
     Dates: start: 20100801, end: 20100906
  9. TRIMIPRAMINE MALEATE [Concomitant]
     Indication: AGGRESSION
     Route: 048
     Dates: start: 20100801, end: 20100906
  10. RISPERDAL [Suspect]
     Route: 048
     Dates: start: 20100907
  11. LISITRIL COMP. [Concomitant]
     Dosage: 10/12, 5 MG
     Route: 048
     Dates: start: 20100916
  12. RISPERDAL [Suspect]
     Route: 048
     Dates: start: 20100907
  13. DIPIPERON [Suspect]
     Indication: ILL-DEFINED DISORDER
     Route: 048
     Dates: start: 20100911, end: 20100914
  14. LISOPRIL [Concomitant]
     Route: 048
     Dates: start: 20100101, end: 20100915
  15. REMERON [Concomitant]
     Indication: AGGRESSION
     Route: 048
     Dates: start: 20100601, end: 20101001
  16. REMERON [Concomitant]
     Route: 048
     Dates: start: 20101002
  17. REMERON [Concomitant]
     Route: 048
     Dates: start: 20100601, end: 20101001
  18. OXYCONTIN [Concomitant]
     Route: 048
     Dates: start: 20100901, end: 20100906

REACTIONS (1)
  - DELIRIUM [None]
